FAERS Safety Report 8379592-6 (Version None)
Quarter: 2012Q2

REPORT INFORMATION
  Report Type: 
  Country: None (occurrence: None)
  Receive Date: 20120523
  Receipt Date: 20120511
  Transmission Date: 20120825
  Serious: Yes (Other)
  Sender: FDA-Public Use
  Company Number: US-JNJFOC-20120508032

PATIENT
  Sex: Female
  Weight: 127.92 kg

DRUGS (19)
  1. TYLENOL W/ CODEINE NO. 3 [Suspect]
     Route: 065
     Dates: start: 20000101
  2. TYLENOL W/ CODEINE NO. 3 [Suspect]
     Route: 065
     Dates: start: 20000101
  3. LYRICA [Suspect]
     Indication: FIBROMYALGIA
     Route: 048
     Dates: start: 20110101
  4. FUROSEMIDE [Suspect]
     Indication: DIURETIC THERAPY
     Route: 065
     Dates: start: 19860101
  5. LEVOTHYROXINE SODIUM [Concomitant]
     Indication: THYROID DISORDER
     Dosage: SINCE 2-3 YEARS AGO
  6. TYLENOL W/ CODEINE NO. 3 [Suspect]
     Indication: FOOT FRACTURE
     Route: 065
     Dates: start: 20120416, end: 20120418
  7. ALPRAZOLAM [Concomitant]
     Indication: ANXIETY
  8. DARVOCET [Concomitant]
     Dates: end: 20100101
  9. TYLENOL W/ CODEINE NO. 3 [Suspect]
     Route: 065
     Dates: start: 20100101
  10. TYLENOL W/ CODEINE NO. 3 [Suspect]
     Route: 065
     Dates: start: 20100101
  11. TYLENOL W/ CODEINE NO. 4 [Suspect]
     Indication: SPINAL PAIN
     Route: 065
     Dates: start: 20120301
  12. LIPITOR [Suspect]
     Route: 048
     Dates: start: 20111001, end: 20120401
  13. BENTYL [Concomitant]
     Indication: GASTROINTESTINAL PAIN
     Dosage: 3 YEARS AGO
  14. TYLENOL W/ CODEINE NO. 3 [Suspect]
     Indication: BACK PAIN
     Route: 065
     Dates: start: 20120416, end: 20120418
  15. UNKNOWN MEDICATION [Concomitant]
     Indication: MIGRAINE
  16. ACETAZOLAMIDE [Concomitant]
     Indication: CSF TEST ABNORMAL
     Route: 065
     Dates: start: 20111201
  17. LIPITOR [Suspect]
     Indication: BLOOD CHOLESTEROL INCREASED
     Route: 048
     Dates: start: 20120401
  18. BENTYL [Concomitant]
     Indication: ABDOMINAL PAIN UPPER
     Dosage: 3 YEARS AGO
  19. TYLENOL W/ CODEINE NO. 4 [Suspect]
     Indication: FIBROMYALGIA
     Route: 065
     Dates: start: 20120301

REACTIONS (9)
  - BLOOD POTASSIUM DECREASED [None]
  - BLOOD CHOLESTEROL INCREASED [None]
  - GOUT [None]
  - HYPERTENSION [None]
  - FOOT FRACTURE [None]
  - HEART RATE IRREGULAR [None]
  - PAIN [None]
  - FALL [None]
  - NAUSEA [None]
